FAERS Safety Report 15291012 (Version 4)
Quarter: 2020Q3

REPORT INFORMATION
  Report Type: Spontaneous
  Country: FR (occurrence: FR)
  Receive Date: 20180817
  Receipt Date: 20200924
  Transmission Date: 20201102
  Serious: Yes (Other)
  Sender: FDA-Public Use
  Company Number: PHHY2018FR072922

PATIENT
  Age: 70 Year
  Sex: Male
  Weight: 71 kg

DRUGS (3)
  1. SOLUPRED [Concomitant]
     Indication: IMMUNOSUPPRESSION
     Dosage: 1 DF, QD (10 (UNKNOWN UNIT), ONCE DAILY)
     Route: 065
     Dates: start: 20170927
  2. CELLCEPT [Concomitant]
     Active Substance: MYCOPHENOLATE MOFETIL\MYCOPHENOLATE MOFETIL HYDROCHLORIDE
     Indication: IMMUNOSUPPRESSION
     Dosage: 1 DF, QD (2000 (UNKNOWN UNIT), ONCE DAILY)
     Route: 065
     Dates: start: 20170927
  3. TACROLIMUS. [Suspect]
     Active Substance: TACROLIMUS
     Indication: RENAL TRANSPLANT
     Dosage: 5 MG, Q12H
     Route: 048
     Dates: start: 20170920

REACTIONS (2)
  - Squamous cell carcinoma [Recovered/Resolved]
  - Hyperglycaemia [Not Recovered/Not Resolved]

NARRATIVE: CASE EVENT DATE: 20171102
